FAERS Safety Report 12070071 (Version 1)
Quarter: 2016Q1

REPORT INFORMATION
  Report Type: Spontaneous
  Country: CA (occurrence: CA)
  Receive Date: 20160211
  Receipt Date: 20160211
  Transmission Date: 20160526
  Serious: Yes (Hospitalization)
  Sender: FDA-Public Use
  Company Number: CA-ASTELLAS-2016US004621

PATIENT
  Age: 57 Year

DRUGS (1)
  1. PROGRAF [Suspect]
     Active Substance: TACROLIMUS\TACROLIMUS ANHYDROUS
     Indication: TRANSPLANT
     Dosage: UNK, UNKNOWN FREQ.
     Route: 048
     Dates: start: 20150321, end: 2015

REACTIONS (1)
  - Locked-in syndrome [Recovered/Resolved with Sequelae]
